FAERS Safety Report 6125892-X (Version None)
Quarter: 2009Q1

REPORT INFORMATION
  Report Type: 
  Country: None (occurrence: None)
  Receive Date: 20090319
  Receipt Date: 20080612
  Transmission Date: 20090719
  Serious: Yes (Disabling)
  Sender: FDA-Public Use
  Company Number: 200813573

PATIENT
  Age: 59 Year
  Sex: Female
  Weight: 51.2565 kg

DRUGS (18)
  1. VIVAGLOBIN [Suspect]
     Indication: SELECTIVE IGG SUBCLASS DEFICIENCY
     Dosage: SEE IMAGE, SC
     Route: 058
     Dates: start: 20070501
  2. VIVAGLOBIN [Suspect]
     Indication: SELECTIVE IGG SUBCLASS DEFICIENCY
     Dosage: SEE IMAGE, SC
     Route: 058
     Dates: start: 20071211
  3. VIVAGLOBIN [Suspect]
     Indication: SELECTIVE IGG SUBCLASS DEFICIENCY
     Dosage: SEE IMAGE, SC
     Route: 058
     Dates: start: 20071211
  4. VIVAGLOBIN [Suspect]
     Indication: SELECTIVE IGG SUBCLASS DEFICIENCY
     Dosage: SEE IMAGE, SC
     Route: 058
     Dates: start: 20080204
  5. VIVAGLOBIN [Suspect]
     Indication: SELECTIVE IGG SUBCLASS DEFICIENCY
     Dosage: SEE IMAGE, SC
     Route: 058
     Dates: start: 20080204
  6. VIVAGLOBIN [Suspect]
     Indication: SELECTIVE IGG SUBCLASS DEFICIENCY
     Dosage: SEE IMAGE, SC
     Route: 058
     Dates: start: 20080304
  7. VIVAGLOBIN [Suspect]
     Indication: SELECTIVE IGG SUBCLASS DEFICIENCY
     Dosage: SEE IMAGE, SC
     Route: 058
     Dates: start: 20080304
  8. VIVAGLOBIN [Suspect]
     Indication: SELECTIVE IGG SUBCLASS DEFICIENCY
     Dosage: SEE IMAGE, SC
     Route: 058
     Dates: start: 20080401
  9. VIVAGLOBIN [Suspect]
     Indication: SELECTIVE IGG SUBCLASS DEFICIENCY
     Dosage: SEE IMAGE, SC
     Route: 058
     Dates: start: 20080401
  10. VIVAGLOBIN [Suspect]
     Indication: SELECTIVE IGG SUBCLASS DEFICIENCY
     Dosage: SEE IMAGE, SC
     Route: 058
     Dates: start: 20080507
  11. VIVAGLOBIN [Suspect]
     Indication: SELECTIVE IGG SUBCLASS DEFICIENCY
     Dosage: SEE IMAGE, SC
     Route: 058
     Dates: start: 20080507
  12. VIVAGLOBIN [Suspect]
  13. VIVAGLOBIN [Suspect]
  14. VIVAGLOBIN [Suspect]
  15. VIVAGLOBIN [Suspect]
  16. VIVAGLOBIN [Suspect]
  17. VIVAGLOBIN [Suspect]
  18. VIVAGLOBIN [Suspect]

REACTIONS (1)
  - PAIN IN EXTREMITY [None]
